FAERS Safety Report 13983301 (Version 2)
Quarter: 2017Q4

REPORT INFORMATION
  Report Type: Report from Study
  Country: GB (occurrence: GB)
  Receive Date: 20170918
  Receipt Date: 20171013
  Transmission Date: 20180321
  Serious: Yes (Hospitalization)
  Sender: FDA-Public Use
  Company Number: GB-ROCHE-1665894

PATIENT
  Age: 74 Year
  Sex: Female
  Weight: 68 kg

DRUGS (2)
  1. RITUXIMAB. [Suspect]
     Active Substance: RITUXIMAB
     Indication: RHEUMATOID ARTHRITIS
     Dosage: LAST DOSE PRIOR TO SAE 17/APR/2015
     Route: 042
     Dates: start: 20150417
  2. METHOTREXATE. [Concomitant]
     Active Substance: METHOTREXATE
     Indication: RHEUMATOID ARTHRITIS
     Route: 065
     Dates: start: 20170615

REACTIONS (5)
  - Diarrhoea [Recovered/Resolved]
  - Diverticulum intestinal [Unknown]
  - Diverticular perforation [Unknown]
  - Campylobacter gastroenteritis [Unknown]
  - Abscess [Unknown]

NARRATIVE: CASE EVENT DATE: 20170619
